FAERS Safety Report 5725848-2 (Version None)
Quarter: 2008Q2

REPORT INFORMATION
  Report Type: 
  Country: None (occurrence: None)
  Receive Date: 20080430
  Receipt Date: 20080421
  Transmission Date: 20081010
  Serious: Yes (Other)
  Sender: FDA-Public Use
  Company Number: 2008010046

PATIENT
  Age: 68 Year
  Sex: Female
  Weight: 38.6 kg

DRUGS (9)
  1. ZYRTEC [Suspect]
     Indication: HYPERSENSITIVITY
     Dosage: 1 TABLET ONE PER DAY (1 IN 1 D), ORAL
     Route: 048
     Dates: start: 20080324
  2. PROTONIX [Concomitant]
  3. DILANTIN KAPSEAL [Concomitant]
  4. KEPPRA [Concomitant]
  5. MYSOLINE [Concomitant]
  6. MULTIVITAMIN [Concomitant]
  7. LAXATIVES (LAXATIVES) [Concomitant]
  8. METOCLOPRAMIDE (METOCLOPRAMIDE) [Concomitant]
  9. CAFERGOT [Concomitant]

REACTIONS (3)
  - CONSTIPATION [None]
  - ORAL INTAKE REDUCED [None]
  - WEIGHT DECREASED [None]
